FAERS Safety Report 6266657-8 (Version None)
Quarter: 2009Q3

REPORT INFORMATION
  Report Type: 
  Country: None (occurrence: None)
  Receive Date: 20090710
  Receipt Date: 20090622
  Transmission Date: 20100115
  Serious: Yes (Hospitalization)
  Sender: FDA-Public Use
  Company Number: JPI-P-007272

PATIENT
  Age: 41 Year
  Sex: Female

DRUGS (3)
  1. XYREM [Suspect]
     Indication: NARCOLEPSY
     Dosage: 11 GM (5.5 GM, 2 IN 1 D), ORAL; 9 GM (4.5 GM, 2 IN 1 D), ORAL
     Route: 048
     Dates: start: 20080123
  2. XYREM [Suspect]
     Indication: NARCOLEPSY
     Dosage: 11 GM (5.5 GM, 2 IN 1 D), ORAL; 9 GM (4.5 GM, 2 IN 1 D), ORAL
     Route: 048
     Dates: start: 20090423
  3. UNSPECIFIED MEDICATIONS [Concomitant]

REACTIONS (1)
  - HOSPITALISATION [None]
